FAERS Safety Report 5814572-3 (Version None)
Quarter: 2008Q3

REPORT INFORMATION
  Report Type: 
  Country: None (occurrence: None)
  Receive Date: 20080718
  Receipt Date: 20071001
  Transmission Date: 20090109
  Serious: No
  Sender: FDA-Public Use
  Company Number: US-KINGPHARMUSA00001-K200701275

PATIENT

DRUGS (1)
  1. LEVOXYL [Suspect]
     Dosage: 112 MCG, UNK
     Dates: start: 20070401

REACTIONS (3)
  - BLOOD CHOLESTEROL INCREASED [None]
  - BLOOD PRESSURE INCREASED [None]
  - WEIGHT INCREASED [None]
